FAERS Safety Report 20349211 (Version 4)
Quarter: 2022Q1

REPORT INFORMATION
  Report Type: Spontaneous
  Country: US (occurrence: US)
  Receive Date: 20220119
  Receipt Date: 20220209
  Transmission Date: 20220423
  Serious: Yes (Hospitalization, Other)
  Sender: FDA-Public Use
  Company Number: US-ADVANZ PHARMA-202201000192

PATIENT

DRUGS (16)
  1. HYDROXYCHLOROQUINE [Suspect]
     Active Substance: HYDROXYCHLOROQUINE
     Indication: Non-small cell lung cancer
     Dosage: 400 MG, BID (400 MG 2X DAY Q12 HR)
     Route: 048
     Dates: start: 20211210, end: 20211221
  2. BINIMETINIB [Suspect]
     Active Substance: BINIMETINIB
     Indication: Non-small cell lung cancer
     Dosage: 45 MG, BID (2X DAY, Q12 HR)
     Route: 048
     Dates: start: 20211210, end: 20211221
  3. ACETAMINOPHEN [Concomitant]
     Active Substance: ACETAMINOPHEN
     Dosage: UNK
     Dates: start: 20210823
  4. CLOPIDOGREL [Concomitant]
     Active Substance: CLOPIDOGREL BISULFATE
     Dosage: UNK
     Dates: start: 20210305
  5. COLLAGENASE [Concomitant]
     Active Substance: COLLAGENASE CLOSTRIDIUM HISTOLYTICUM
     Indication: Skin ulcer
     Dosage: UNK
     Dates: start: 20210905
  6. GABAPENTIN [Concomitant]
     Active Substance: GABAPENTIN
     Indication: Neuralgia
     Dosage: UNK
     Dates: start: 20210621
  7. LORATADINE [Concomitant]
     Active Substance: LORATADINE
     Dosage: UNK
     Dates: start: 20211015
  8. OXYCODONE [Concomitant]
     Active Substance: OXYCODONE
     Indication: Cancer pain
     Dosage: UNK
     Dates: start: 20211028
  9. OXYCODONE [Concomitant]
     Active Substance: OXYCODONE
     Dosage: UNK
     Dates: start: 20211110
  10. POTASSIUM CHLORIDE [Concomitant]
     Active Substance: POTASSIUM CHLORIDE
     Indication: Hypokalaemia
     Dosage: UNK
     Dates: start: 20211008
  11. POTASSIUM CHLORIDE [Concomitant]
     Active Substance: POTASSIUM CHLORIDE
     Dosage: UNK
     Dates: start: 20211223
  12. RIVAROXABAN [Concomitant]
     Active Substance: RIVAROXABAN
     Dosage: UNK
     Dates: start: 20210429
  13. TRIAMCINOLONE [Concomitant]
     Active Substance: TRIAMCINOLONE
     Dosage: UNK
     Dates: start: 20211015
  14. VANCOMYCIN [Concomitant]
     Active Substance: VANCOMYCIN
     Indication: Clostridium difficile infection
     Dosage: UNK
     Dates: start: 20211127
  15. VANCOMYCIN [Concomitant]
     Active Substance: VANCOMYCIN
     Dosage: UNK, BID (TO BE TAKEN (Q6HR)
     Dates: start: 20211227, end: 20211229
  16. Potassium chloride; Sodium chloride [Concomitant]
     Indication: Hypokalaemia
     Dosage: UNK
     Dates: start: 20211222, end: 20211223

REACTIONS (2)
  - Hypokalaemia [Recovering/Resolving]
  - Diarrhoea [Not Recovered/Not Resolved]

NARRATIVE: CASE EVENT DATE: 20211229
